FAERS Safety Report 4352026-4 (Version None)
Quarter: 2004Q2

REPORT INFORMATION
  Report Type: 
  Country: None (occurrence: None)
  Receive Date: 20040503
  Receipt Date: 20040426
  Transmission Date: 20050107
  Serious: Yes (Life-Threatening, Disabling)
  Sender: FDA-Public Use
  Company Number: US-MERCK-0404USA02209

PATIENT
  Age: 49 Year
  Sex: Male

DRUGS (5)
  1. [THERAPY UNSPECIFIED] [Concomitant]
     Route: 065
  2. ATENOLOL [Concomitant]
     Route: 065
  3. ZETIA [Suspect]
     Indication: BLOOD CHOLESTEROL INCREASED
     Route: 048
     Dates: start: 20040401, end: 20040401
  4. ADVAIR DISKUS 100/50 [Concomitant]
     Route: 065
  5. SINGULAIR [Concomitant]
     Route: 065

REACTIONS (2)
  - MYALGIA [None]
  - OEDEMA PERIPHERAL [None]
